FAERS Safety Report 5025803-4 (Version None)
Quarter: 2006Q2

REPORT INFORMATION
  Report Type: 
  Country: None (occurrence: None)
  Receive Date: 20060608
  Receipt Date: 20060525
  Transmission Date: 20061013
  Serious: Yes (Other)
  Sender: FDA-Public Use
  Company Number: 02100-JPN-06-0244

PATIENT
  Age: 78 Year
  Sex: Male

DRUGS (6)
  1. CILOSTAZOL [Suspect]
     Indication: CEREBRAL INFARCTION
     Dosage: 200 MG ORAL
     Route: 048
     Dates: start: 20060522, end: 20060524
  2. FAMOTIDINE [Concomitant]
  3. ASPIRIN [Concomitant]
  4. PRAVASTATIN SODIUM [Concomitant]
  5. FLUVOXAMINE MALEATE [Concomitant]
  6. MAGNESIUM OXIDE [Concomitant]

REACTIONS (5)
  - CEREBROVASCULAR DISORDER [None]
  - CONDITION AGGRAVATED [None]
  - DEPRESSED LEVEL OF CONSCIOUSNESS [None]
  - PARALYSIS [None]
  - TACHYCARDIA [None]
